FAERS Safety Report 16109397 (Version 1)
Quarter: 2019Q1

REPORT INFORMATION
  Report Type: Spontaneous
  Country: US (occurrence: US)
  Receive Date: 20190324
  Receipt Date: 20190324
  Transmission Date: 20190418
  Serious: Yes (Other)
  Sender: FDA-Public Use
  Company Number: US-TEVA-2019-US-1029821

PATIENT
  Sex: Female

DRUGS (2)
  1. BOTOX [Concomitant]
     Active Substance: ONABOTULINUMTOXINA
     Dates: start: 2012
  2. AJOVY [Suspect]
     Active Substance: FREMANEZUMAB-VFRM
     Dates: start: 20190222

REACTIONS (15)
  - Gait disturbance [Unknown]
  - Musculoskeletal pain [Unknown]
  - Asthenia [Unknown]
  - Back pain [Unknown]
  - Speech disorder [Unknown]
  - Ear pain [Unknown]
  - Pain [Unknown]
  - Chest pain [Unknown]
  - Confusional state [Unknown]
  - Vertigo [Unknown]
  - Myalgia [Unknown]
  - Nausea [Unknown]
  - Pain in extremity [Unknown]
  - Dizziness [Unknown]
  - Tremor [Unknown]

NARRATIVE: CASE EVENT DATE: 20190305
